FAERS Safety Report 19495056 (Version 1)
Quarter: 2021Q3

REPORT INFORMATION
  Report Type: Spontaneous
  Country: US (occurrence: US)
  Receive Date: 20210706
  Receipt Date: 20210706
  Transmission Date: 20211014
  Serious: No
  Sender: FDA-Public Use
  Company Number: US-ELI_LILLY_AND_COMPANY-US202106009360

PATIENT
  Sex: Female

DRUGS (1)
  1. TALTZ [Suspect]
     Active Substance: IXEKIZUMAB
     Indication: PRODUCT USED FOR UNKNOWN INDICATION
     Dosage: UNK UNK, UNKNOWN
     Route: 065

REACTIONS (7)
  - Muscle spasms [Unknown]
  - Injection site induration [Unknown]
  - Diarrhoea [Unknown]
  - Injection site erythema [Unknown]
  - Injection site bruising [Unknown]
  - Paraesthesia [Unknown]
  - Injection site warmth [Unknown]
